FAERS Safety Report 12914925 (Version 1)
Quarter: 2016Q4

REPORT INFORMATION
  Report Type: Spontaneous
  Country: RO (occurrence: RO)
  Receive Date: 20161106
  Receipt Date: 20161106
  Transmission Date: 20170207
  Serious: Yes (Death)
  Sender: FDA-Public Use
  Company Number: RO-ASTRAZENECA-2016SF14545

PATIENT
  Age: 13 Year
  Sex: Female

DRUGS (3)
  1. MEROPENEM. [Suspect]
     Active Substance: MEROPENEM
     Route: 042
  2. ANTI-INFLAMMATORY [Suspect]
     Active Substance: UNSPECIFIED INGREDIENT
     Route: 065
  3. VANCOMYCIN [Suspect]
     Active Substance: VANCOMYCIN
     Route: 065

REACTIONS (4)
  - Renal impairment [Fatal]
  - General physical health deterioration [Fatal]
  - Liver disorder [Fatal]
  - Haemorrhagic disorder [Fatal]
